FAERS Safety Report 5307953-8 (Version None)
Quarter: 2007Q2

REPORT INFORMATION
  Report Type: 
  Country: None (occurrence: None)
  Receive Date: 20070426
  Receipt Date: 20070413
  Transmission Date: 20071010
  Serious: Yes (Other)
  Sender: FDA-Public Use
  Company Number: 2007CG00412

PATIENT
  Age: 16870 Day
  Sex: Male
  Weight: 86 kg

DRUGS (3)
  1. CRESTOR [Suspect]
     Indication: HYPERCHOLESTEROLAEMIA
     Route: 048
     Dates: start: 20061008, end: 20061030
  2. TRIATEC [Concomitant]
     Indication: HYPERTENSION
     Route: 048
     Dates: start: 20061008
  3. PLAVIX [Concomitant]
     Indication: CARDIOVASCULAR EVENT PROPHYLAXIS
     Route: 048
     Dates: start: 20061008

REACTIONS (1)
  - CYTOLYTIC HEPATITIS [None]
